FAERS Safety Report 11543683 (Version 1)
Quarter: 2015Q3

REPORT INFORMATION
  Report Type: Report from Study
  Country: CO (occurrence: CO)
  Receive Date: 20150924
  Receipt Date: 20150924
  Transmission Date: 20151125
  Serious: Yes (Disabling, Other)
  Sender: FDA-Public Use
  Company Number: CO-ROCHE-1637206

PATIENT
  Sex: Female

DRUGS (1)
  1. XOLAIR [Suspect]
     Active Substance: OMALIZUMAB
     Indication: ASTHMA
     Route: 058
     Dates: start: 20150911, end: 20150911

REACTIONS (5)
  - Malaise [Not Recovered/Not Resolved]
  - Influenza [Not Recovered/Not Resolved]
  - Arthralgia [Not Recovered/Not Resolved]
  - Breast pain [Not Recovered/Not Resolved]
  - Headache [Not Recovered/Not Resolved]
